FAERS Safety Report 15508624 (Version 2)
Quarter: 2019Q2

REPORT INFORMATION
  Report Type: Spontaneous
  Country: US (occurrence: US)
  Receive Date: 20181016
  Receipt Date: 20190610
  Transmission Date: 20190711
  Serious: Yes (Hospitalization)
  Sender: FDA-Public Use
  Company Number: US-PFIZER INC-2018417157

PATIENT
  Age: 66 Year
  Sex: Female

DRUGS (2)
  1. NEXIUM [Concomitant]
     Active Substance: ESOMEPRAZOLE MAGNESIUM
     Dosage: 40 MG, UNK
     Dates: start: 2013
  2. XELJANZ [Suspect]
     Active Substance: TOFACITINIB CITRATE
     Indication: RHEUMATOID ARTHRITIS
     Dosage: 5 MG, DAILY
     Dates: start: 201808, end: 201808

REACTIONS (2)
  - Blood pressure decreased [Recovered/Resolved]
  - Functional gastrointestinal disorder [Recovered/Resolved]

NARRATIVE: CASE EVENT DATE: 201808
